FAERS Safety Report 16894597 (Version 1)
Quarter: 2019Q4

REPORT INFORMATION
  Report Type: Spontaneous
  Country: DE (occurrence: DE)
  Receive Date: 20191008
  Receipt Date: 20191008
  Transmission Date: 20200122
  Serious: Yes (Other)
  Sender: FDA-Public Use
  Company Number: DE-ASTRAZENECA-2019SF39862

PATIENT
  Sex: Female
  Weight: 58 kg

DRUGS (7)
  1. ALVESCO [Suspect]
     Active Substance: CICLESONIDE
     Indication: ASTHMA
     Dosage: 160UG/INHAL AT NIGHT
     Route: 055
     Dates: start: 20180619, end: 20180814
  2. VIANI [Concomitant]
     Active Substance: FLUTICASONE PROPIONATE\SALMETEROL XINAFOATE
     Indication: ASTHMA
     Route: 055
     Dates: start: 20180619, end: 20180808
  3. SALBUHEXAL [Concomitant]
     Active Substance: ALBUTEROL
     Indication: ASTHMA
     Dosage: IF NEEDED.
     Route: 055
  4. NOVOPULMON 400 NOVOLIZER [Suspect]
     Active Substance: BUDESONIDE
     Indication: ASTHMA
     Route: 055
     Dates: start: 20180815, end: 20190409
  5. AERODUR [Concomitant]
     Indication: ASTHMA
     Dosage: IF NEEDED
     Route: 055
  6. L-THYROX HEXAL 25 [Concomitant]
     Indication: HYPOTHYROIDISM
     Dosage: 37.5 (UG/D 1X/D (1.5 TABLETS))
     Route: 048
     Dates: start: 20180619, end: 20190409
  7. SEREVENT DISKUS [Concomitant]
     Active Substance: SALMETEROL XINAFOATE
     Indication: ASTHMA
     Dosage: 100 (UG/D (TO 50 UG/D, IF NEEDED))
     Route: 055
     Dates: start: 20181004, end: 20190409

REACTIONS (3)
  - Exposure during pregnancy [Unknown]
  - Gestational diabetes [Recovered/Resolved]
  - Amniotic fluid volume increased [Recovered/Resolved]
